FAERS Safety Report 8471607 (Version 2)
Quarter: 2013Q2

REPORT INFORMATION
  Report Type: Spontaneous
  Country: US (occurrence: US)
  Receive Date: 20120322
  Receipt Date: 20130522
  Transmission Date: 20140414
  Serious: Yes (Hospitalization)
  Sender: FDA-Public Use
  Company Number: US-PFIZER INC-2012074041

PATIENT
  Age: 56 Year
  Sex: Male
  Weight: 111 kg

DRUGS (10)
  1. LIPITOR [Suspect]
     Indication: BLOOD CHOLESTEROL INCREASED
     Dosage: 40 MG, DAILY
     Route: 048
     Dates: start: 2008
  2. ATORVASTATIN CALCIUM [Suspect]
     Indication: BLOOD CHOLESTEROL INCREASED
     Dosage: 40 MG, DAILY
     Route: 048
     Dates: start: 201102
  3. METFORMIN HCL [Suspect]
     Indication: DIABETES MELLITUS
     Dosage: 500 MG, 2X/DAY
     Route: 048
     Dates: start: 201111
  4. CELEBREX [Suspect]
     Indication: ARTHRITIS
     Dosage: 200 MG, UNK
     Dates: start: 2007
  5. VIAGRA [Suspect]
     Indication: ERECTILE DYSFUNCTION
     Dosage: 100 MG, AS NEEDED
     Dates: start: 2011
  6. GLUCOTROL XL [Suspect]
     Indication: DIABETES MELLITUS
     Dosage: 10 MG, 2X/DAY
     Dates: start: 2005
  7. ACCUPRIL [Suspect]
     Indication: HYPERTENSION
     Dosage: 20 MG, DAILY
  8. QUINAPRIL [Concomitant]
     Indication: HYPERTENSION
     Dosage: UNK
  9. GLUCOTROL [Concomitant]
     Dosage: UNK
  10. GLUCOPHAGE [Concomitant]
     Indication: DIABETES MELLITUS
     Dosage: UNK

REACTIONS (5)
  - Myocardial infarction [Recovered/Resolved]
  - Dyspnoea [Not Recovered/Not Resolved]
  - Abdominal discomfort [Not Recovered/Not Resolved]
  - Epigastric discomfort [Not Recovered/Not Resolved]
  - Nausea [Not Recovered/Not Resolved]
